FAERS Safety Report 21582686 (Version 2)
Quarter: 2022Q4

REPORT INFORMATION
  Report Type: Spontaneous
  Country: US (occurrence: US)
  Receive Date: 20221111
  Receipt Date: 20221216
  Transmission Date: 20230113
  Serious: No
  Sender: FDA-Public Use
  Company Number: US-ORGANON-O2211USA000799

PATIENT
  Age: 54 Year
  Sex: Male
  Weight: 78.005 kg

DRUGS (2)
  1. PREGNYL [Suspect]
     Active Substance: CHORIOGONADOTROPIN ALFA
     Indication: Hypogonadism
     Dosage: 12000 IU AT 500 UNITS 3 TIMES PER WEEK
     Dates: start: 20221104
  2. STERILE WATER [Suspect]
     Active Substance: WATER
     Dosage: 1 MILLILITER
     Dates: start: 20221104

REACTIONS (3)
  - Product dose omission issue [Unknown]
  - Product packaging quantity issue [Unknown]
  - No adverse event [Unknown]

NARRATIVE: CASE EVENT DATE: 20221104
